FAERS Safety Report 16676141 (Version 1)
Quarter: 2019Q3

REPORT INFORMATION
  Report Type: Spontaneous
  Country: FR (occurrence: FR)
  Receive Date: 20190807
  Receipt Date: 20190807
  Transmission Date: 20191004
  Serious: Yes (Hospitalization, Other)
  Sender: FDA-Public Use
  Company Number: FR-DENTSPLY-2019SCDP000424

PATIENT
  Age: 2 Month
  Sex: Male
  Weight: 5 kg

DRUGS (2)
  1. LIDOCAINE. [Suspect]
     Active Substance: LIDOCAINE
     Indication: NERVE BLOCK
     Dosage: 5 MILLILITER OF LIDOCAINE, 1 PERCENT (TOTAL DOSE 100 MG OR 20 MG/KG
  2. LIDOCAINE. [Suspect]
     Active Substance: LIDOCAINE
     Dosage: 5 MILLILITER OF LIDOCAINE, 1 PERCENT (TOTAL DOSE 100 MG OR 20 MG/KG

REACTIONS (7)
  - Seizure [Recovered/Resolved]
  - Coma [Recovered/Resolved]
  - Eye disorder [Recovered/Resolved]
  - Circulatory collapse [Recovered/Resolved]
  - Overdose [Unknown]
  - Respiratory distress [Recovered/Resolved]
  - Vomiting [Recovered/Resolved]
